FAERS Safety Report 5385968-1 (Version None)
Quarter: 2007Q3

REPORT INFORMATION
  Report Type: 
  Country: None (occurrence: None)
  Receive Date: 20070712
  Receipt Date: 20070705
  Transmission Date: 20080115
  Serious: Yes (Death, Life-Threatening, Hospitalization)
  Sender: FDA-Public Use
  Company Number: AT-MERCK-0605AUT00010

PATIENT
  Age: 49 Year
  Sex: Female
  Weight: 45 kg

DRUGS (11)
  1. CANCIDAS [Suspect]
     Indication: ASPERGILLOSIS
     Route: 041
     Dates: start: 20060416, end: 20060420
  2. VORICONAZOLE [Concomitant]
     Route: 065
     Dates: start: 20060420, end: 20060420
  3. VORICONAZOLE [Concomitant]
     Route: 065
     Dates: start: 20060421, end: 20060501
  4. PIPERACILLIN SODIUM AND TAZOBACTAM SODIUM [Concomitant]
     Route: 065
     Dates: start: 20060408, end: 20060414
  5. VANCOMYCIN [Concomitant]
     Route: 065
     Dates: start: 20060412, end: 20060501
  6. FLUCONAZOLE [Concomitant]
     Route: 065
     Dates: start: 20060414, end: 20060414
  7. FLUCONAZOLE [Concomitant]
     Route: 065
     Dates: start: 20060415, end: 20060416
  8. MEROPENEM [Concomitant]
     Route: 065
     Dates: start: 20060414, end: 20060501
  9. CIPROFLOXACIN [Concomitant]
     Route: 065
     Dates: start: 20060418, end: 20060418
  10. CIPROFLOXACIN [Concomitant]
     Route: 065
     Dates: start: 20060419, end: 20060501
  11. GANCICLOVIR [Concomitant]
     Route: 065

REACTIONS (3)
  - DRUG RESISTANCE [None]
  - SEPTIC SHOCK [None]
  - SYSTEMIC MYCOSIS [None]
